FAERS Safety Report 10866056 (Version 2)
Quarter: 2025Q3

REPORT INFORMATION
  Report Type: Spontaneous
  Country: EU (occurrence: US)
  Receive Date: 20150225
  Receipt Date: 20250917
  Transmission Date: 20251020
  Serious: Yes (Death, Hospitalization, Other)
  Sender: AUROBINDO
  Company Number: EU-AUROBINDO-AUR-APL-2015-01468

PATIENT
  Age: 64 Year
  Sex: Male

DRUGS (4)
  1. LEVETIRACETAM [Suspect]
     Active Substance: LEVETIRACETAM
     Indication: Seizure
     Route: 065
  2. LEVETIRACETAM [Suspect]
     Active Substance: LEVETIRACETAM
     Indication: Partial seizures with secondary generalisation
     Dosage: 3000 MG, ONCE A DAY
     Route: 065
  3. PREGABALIN [Suspect]
     Active Substance: PREGABALIN
     Indication: Seizure
     Dosage: 150 MG, TWO TIMES A DAY
     Route: 065
  4. PHENOBARBITAL [Suspect]
     Active Substance: PHENOBARBITAL
     Indication: Partial seizures
     Dosage: 50 MG, ONCE A DAY
     Route: 065

REACTIONS (14)
  - Seizure [Fatal]
  - Partial seizures with secondary generalisation [Fatal]
  - Anticonvulsant drug level below therapeutic [Fatal]
  - Stupor [Fatal]
  - Mental status changes [Fatal]
  - Metabolic encephalopathy [Recovered/Resolved]
  - Ammonia increased [Recovered/Resolved]
  - Hepatic encephalopathy [Recovered/Resolved]
  - Acute hepatic failure [Recovered/Resolved]
  - Disease progression [Unknown]
  - Somnolence [Recovering/Resolving]
  - Drug intolerance [Unknown]
  - Drug ineffective [Recovered/Resolved]
  - Partial seizures [Recovered/Resolved]
